FAERS Safety Report 10889760 (Version 2)
Quarter: 2015Q1

REPORT INFORMATION
  Report Type: Spontaneous
  Country: JP (occurrence: JP)
  Receive Date: 20150306
  Receipt Date: 20150315
  Transmission Date: 20150721
  Serious: Yes (Other)
  Sender: FDA-Public Use
  Company Number: JP-009507513-1503JPN000206

PATIENT
  Age: 69 Year
  Sex: Male

DRUGS (11)
  1. URSODIOL. [Concomitant]
     Active Substance: URSODIOL
     Indication: CHOLECYSTITIS
     Dosage: 50 MG, TID
     Route: 048
     Dates: start: 2015
  2. ASPARA K [Concomitant]
     Active Substance: POTASSIUM ASPARTATE
     Indication: HYPOKALAEMIA
  3. BFLUID [Concomitant]
     Active Substance: AMINO ACIDS\DEXTROSE\ELECTROLYTES NOS\VITAMINS
     Dosage: 3-4 KITS A DAY, DAILY DOSE UNKNOWN
     Route: 041
  4. SODIUM CHLORIDE. [Concomitant]
     Active Substance: SODIUM CHLORIDE
     Indication: HYPONATRAEMIA
     Dosage: 1 G, TID
     Route: 065
     Dates: start: 2015
  5. CLARITIN [Suspect]
     Active Substance: LORATADINE
     Indication: HYPERSENSITIVITY
     Dosage: 10 MG, QD
     Route: 048
     Dates: end: 20150224
  6. TAKEPRON [Concomitant]
     Active Substance: LANSOPRAZOLE
     Dosage: 15 MG, QD
     Route: 048
     Dates: end: 20150221
  7. THERAPY UNSPECIFIED [Suspect]
     Active Substance: UNSPECIFIED INGREDIENT
     Dosage: UNK
  8. SENNA [Concomitant]
     Active Substance: SENNA LEAF\SENNOSIDES\SENNOSIDES A AND B
     Dosage: 1 G, QD
     Route: 048
  9. ASPARA K [Concomitant]
     Active Substance: POTASSIUM ASPARTATE
     Indication: MINERAL SUPPLEMENTATION
     Dosage: 1.8 G, TID, AFTER EACH MEAL
     Route: 048
     Dates: start: 2015
  10. ZOSYN [Concomitant]
     Active Substance: PIPERACILLIN SODIUM\TAZOBACTAM SODIUM
     Dosage: 4.5 G, TID
     Route: 042
     Dates: end: 20150216
  11. MEROPEN [Concomitant]
     Active Substance: MEROPENEM
     Dosage: 0.5 G, BID
     Route: 041

REACTIONS (8)
  - Cholecystitis acute [Unknown]
  - Cholecystitis [Unknown]
  - Hyponatraemia [Unknown]
  - Ileus paralytic [Unknown]
  - Thrombocytopenia [Unknown]
  - Platelet count decreased [Unknown]
  - Hypokalaemia [Unknown]
  - Cholelithiasis [Unknown]

NARRATIVE: CASE EVENT DATE: 201404
